FAERS Safety Report 6338290-0 (Version None)
Quarter: 2009Q3

REPORT INFORMATION
  Report Type: 
  Country: None (occurrence: None)
  Receive Date: 20090902
  Receipt Date: 20090826
  Transmission Date: 20100115
  Serious: Yes (Death, Hospitalization)
  Sender: FDA-Public Use
  Company Number: JP-B.I. PHARMACEUTICALS,INC./RIDGEFIELD-2009-DE-04762GD

PATIENT
  Sex: Male
  Weight: 53.6 kg

DRUGS (11)
  1. MOBIC [Suspect]
     Indication: BACK PAIN
     Dosage: 10 MG
     Route: 048
     Dates: start: 20040101, end: 20070612
  2. GASTROM [Concomitant]
     Dosage: 2 ANZ
     Route: 048
     Dates: end: 20070811
  3. PROTECADIN [Concomitant]
     Dosage: 20 MG
     Route: 048
     Dates: end: 20070612
  4. NORVASC [Concomitant]
     Dosage: 10 MG
     Route: 048
     Dates: end: 20070811
  5. BLOPRESS [Concomitant]
     Dosage: 8 MG
     Route: 048
     Dates: end: 20070811
  6. OPALMON [Concomitant]
     Dosage: 30 MG
     Route: 048
     Dates: end: 20070811
  7. MUCOSTA [Concomitant]
     Dosage: 100 MG
     Route: 048
     Dates: end: 20070606
  8. FOSMICIN-S [Concomitant]
     Dosage: 4 G
     Route: 042
     Dates: start: 20070606, end: 20070613
  9. PANTOL [Concomitant]
     Dosage: 1000 MG
     Route: 042
     Dates: start: 20070606, end: 20070613
  10. GASTER [Concomitant]
     Dosage: 20 MG
     Route: 042
     Dates: start: 20070606, end: 20070812
  11. PARIET [Concomitant]
     Dosage: 10 MG
     Route: 048
     Dates: start: 20070613, end: 20070811

REACTIONS (3)
  - SEPSIS [None]
  - SMALL INTESTINAL STENOSIS [None]
  - SMALL INTESTINE ULCER [None]
